FAERS Safety Report 7756337-1 (Version None)
Quarter: 2011Q3

REPORT INFORMATION
  Report Type: 
  Country: None (occurrence: None)
  Receive Date: 20110916
  Receipt Date: 20110912
  Transmission Date: 20111222
  Serious: Yes (Hospitalization)
  Sender: FDA-Public Use
  Company Number: DE-ROCHE-802463

PATIENT
  Sex: Male
  Weight: 77 kg

DRUGS (4)
  1. CAPECITABINE [Suspect]
     Dosage: 3RD CYCLE
     Route: 048
     Dates: start: 20110801, end: 20110821
  2. OXALIPLATIN [Suspect]
     Indication: METASTATIC GASTRIC CANCER
     Dosage: 3RD CYCLE STARTED ON 01-AUG-2011
     Route: 042
     Dates: end: 20110801
  3. EPIRUBICIN [Suspect]
     Indication: METASTATIC GASTRIC CANCER
     Dosage: 3RD CYCLE STARTED ON 01-AUG-2011
     Route: 042
     Dates: end: 20110801
  4. CAPECITABINE [Suspect]
     Indication: METASTATIC GASTRIC CANCER
     Dosage: 1ST - 2ND CYCLE
     Route: 048

REACTIONS (2)
  - PYREXIA [None]
  - ANAL ABSCESS [None]
